FAERS Safety Report 9482692 (Version 1)
Quarter: 2013Q3

REPORT INFORMATION
  Report Type: Report from Study
  Country: CA (occurrence: CA)
  Receive Date: 20130828
  Receipt Date: 20130828
  Transmission Date: 20140515
  Serious: Yes (Hospitalization)
  Sender: FDA-Public Use
  Company Number: CA-JNJFOC-20130814081

PATIENT
  Sex: Female
  Weight: 64.9 kg

DRUGS (1)
  1. REMICADE [Suspect]
     Indication: PRODUCT USED FOR UNKNOWN INDICATION
     Dosage: WEEK 0 AND 2 COMPLETED
     Route: 042
     Dates: start: 20130625

REACTIONS (2)
  - Postoperative wound infection [Unknown]
  - Intestinal resection [Unknown]
